FAERS Safety Report 6679823-4 (Version None)
Quarter: 2010Q2

REPORT INFORMATION
  Report Type: 
  Country: None (occurrence: None)
  Receive Date: 20100413
  Receipt Date: 20100215
  Transmission Date: 20101027
  Serious: No
  Sender: FDA-Public Use
  Company Number: US-ASTRAZENECA-2010SE06641

PATIENT
  Sex: Male

DRUGS (1)
  1. ATENOLOL [Suspect]

REACTIONS (1)
  - BLOOD PRESSURE FLUCTUATION [None]
